FAERS Safety Report 12853564 (Version 1)
Quarter: 2016Q4

REPORT INFORMATION
  Report Type: Spontaneous
  Country: US (occurrence: US)
  Receive Date: 20161017
  Receipt Date: 20161017
  Transmission Date: 20170207
  Serious: No
  Sender: FDA-Public Use
  Company Number: US-WEST-WARD PHARMACEUTICALS CORP.-US-H14001-16-00162

PATIENT
  Age: 54 Year
  Sex: Female

DRUGS (3)
  1. INFUMORPH [Suspect]
     Active Substance: MORPHINE SULFATE
     Route: 037
     Dates: start: 20121019, end: 20130325
  2. INFUMORPH [Suspect]
     Active Substance: MORPHINE SULFATE
     Indication: PAIN
     Route: 037
     Dates: start: 20120910
  3. INFUMORPH [Suspect]
     Active Substance: MORPHINE SULFATE
     Route: 037
     Dates: start: 20120920, end: 20121003

REACTIONS (9)
  - Pain [Not Recovered/Not Resolved]
  - Depression [Recovered/Resolved]
  - Confusional state [Recovered/Resolved]
  - Vomiting [Unknown]
  - Somnolence [Unknown]
  - Nausea [Unknown]
  - Peripheral swelling [Not Recovered/Not Resolved]
  - Dry mouth [Unknown]
  - Disorientation [Recovered/Resolved]

NARRATIVE: CASE EVENT DATE: 20120920
